FAERS Safety Report 8904311 (Version 1)
Quarter: 2012Q4

REPORT INFORMATION
  Report Type: 
  Country: DE (occurrence: DE)
  Receive Date: 20121112
  Receipt Date: 20121112
  Transmission Date: 20130627
  Serious: Yes (Other)
  Sender: FDA-Public Use
  Company Number: DE-GLAXOSMITHKLINE-B0843265B

PATIENT

DRUGS (11)
  1. FORMOTEROL [Suspect]
     Indication: ASTHMA
     Route: 064
  2. BECLOMETASONE DIPROPIONATE [Suspect]
     Indication: ASTHMA
     Route: 064
  3. QUETIAPINE [Suspect]
     Indication: PSYCHOTIC DISORDER
     Route: 064
  4. CITALOPRAM [Suspect]
     Indication: PSYCHOTIC DISORDER
     Route: 064
  5. RESTEX [Suspect]
     Indication: RESTLESS LEGS SYNDROME
     Route: 064
  6. MADOPAR [Suspect]
     Indication: RESTLESS LEGS SYNDROME
     Route: 064
  7. DOXEPIN [Suspect]
     Indication: PSYCHOTIC DISORDER
     Route: 064
  8. ETHINYL ESTRADIOL [Suspect]
     Indication: CONTRACEPTION
     Route: 064
  9. LEVONORGESTREL [Suspect]
     Indication: CONTRACEPTION
     Route: 064
  10. CROMOGLICATE LISETIL [Suspect]
     Indication: ASTHMA
     Route: 064
  11. REPROTEROL HYDROCHLORIDE [Suspect]
     Indication: ASTHMA
     Route: 064

REACTIONS (6)
  - Respiratory distress [Unknown]
  - Foetal exposure during pregnancy [Unknown]
  - Premature delivery [Unknown]
  - Neonatal respiratory distress syndrome [None]
  - Maternal drugs affecting foetus [None]
  - Premature baby [None]
